FAERS Safety Report 12732378 (Version 2)
Quarter: 2016Q3

REPORT INFORMATION
  Report Type: Report from Study
  Country: US (occurrence: US)
  Receive Date: 20160912
  Receipt Date: 20160919
  Transmission Date: 20161109
  Serious: Yes (Other)
  Sender: FDA-Public Use
  Company Number: US-AMGEN-USASL2016101171

PATIENT
  Age: 64 Year
  Sex: Female
  Weight: 55.69 kg

DRUGS (1)
  1. PROLIA [Suspect]
     Active Substance: DENOSUMAB
     Indication: OSTEOPOROSIS POSTMENOPAUSAL
     Dosage: 60 MG/ML, UNK
     Route: 058
     Dates: start: 2014

REACTIONS (7)
  - Pain [Recovered/Resolved]
  - Tinnitus [Recovering/Resolving]
  - Pruritus [Unknown]
  - Vertigo [Recovering/Resolving]
  - Pain in extremity [Recovered/Resolved]
  - Burning sensation [Recovering/Resolving]
  - Arthralgia [Recovering/Resolving]

NARRATIVE: CASE EVENT DATE: 2014
